FAERS Safety Report 9401061 (Version 2)
Quarter: 2013Q3

REPORT INFORMATION
  Report Type: Report from Study
  Country: BR (occurrence: BR)
  Receive Date: 20130715
  Receipt Date: 20130716
  Transmission Date: 20140515
  Serious: Yes (Other)
  Sender: FDA-Public Use
  Company Number: PHHY2013BR071725

PATIENT
  Age: 52 Year
  Sex: Female

DRUGS (4)
  1. DIOVAN HCT [Suspect]
     Indication: HYPERTENSION
     Dosage: 1 TABLET (160/12.5 MG), DAILY
     Route: 048
  2. DIOVAN HCT [Suspect]
     Dosage: 1 TABLET (320/12.5 MG), DAILY
     Route: 048
  3. HIGROTON [Suspect]
     Indication: HYPERTENSION
     Dosage: 1 TABLET, DAILY
     Route: 048
     Dates: start: 201304, end: 201306
  4. PRESSAT [Concomitant]
     Indication: HYPERTENSION
     Dosage: 2 TABLETS (5 MG), DAILY
     Route: 048
     Dates: start: 201306

REACTIONS (2)
  - Hypertension [Recovered/Resolved]
  - Blood pressure inadequately controlled [Recovered/Resolved]
